FAERS Safety Report 9925372 (Version 1)
Quarter: 2014Q1

REPORT INFORMATION
  Report Type: Spontaneous
  Country: GB (occurrence: GB)
  Receive Date: 20140226
  Receipt Date: 20140226
  Transmission Date: 20141002
  Serious: Yes (Death, Life-Threatening, Hospitalization)
  Sender: FDA-Public Use
  Company Number: GB-PFIZER INC-2014052225

PATIENT
  Age: 63 Year
  Sex: Male
  Weight: 66 kg

DRUGS (1)
  1. IRINOTECAN HCL [Suspect]
     Indication: PALLIATIVE CARE
     Dosage: 180 MG/M2, UNK
     Route: 042
     Dates: start: 20131031, end: 20131220

REACTIONS (3)
  - Pneumocystis jirovecii infection [Fatal]
  - Lymphopenia [Not Recovered/Not Resolved]
  - Dyspnoea [Not Recovered/Not Resolved]
